FAERS Safety Report 10484846 (Version 1)
Quarter: 2014Q3

REPORT INFORMATION
  Report Type: Report from Study
  Country: US (occurrence: US)
  Receive Date: 20140930
  Receipt Date: 20140930
  Transmission Date: 20150326
  Serious: Yes (Other)
  Sender: FDA-Public Use
  Company Number: US-BRISTOL-MYERS SQUIBB COMPANY-21443163

PATIENT
  Age: 64 Year
  Sex: Male
  Weight: 125 kg

DRUGS (1)
  1. IPILIMUMAB [Suspect]
     Active Substance: IPILIMUMAB
     Indication: MALIGNANT MELANOMA
     Dosage: IND: 3 MG/KG IV OVER 90 MINS, Q 3 WEEKS X 4 DOSES?MAIN:Q12 WKS?LAST DOSE:15NOV13?TOTAL DOSE:370MG
     Route: 042
     Dates: start: 20130605

REACTIONS (1)
  - Neutrophil count decreased [Recovering/Resolving]

NARRATIVE: CASE EVENT DATE: 20140205
